FAERS Safety Report 10169742 (Version 5)
Quarter: 2015Q2

REPORT INFORMATION
  Report Type: Spontaneous
  Country: US (occurrence: US)
  Receive Date: 20140513
  Receipt Date: 20150625
  Transmission Date: 20150821
  Serious: Yes (Hospitalization, Disabling, Other)
  Sender: FDA-Public Use
  Company Number: US-009507513-1405USA002431

PATIENT
  Sex: Female

DRUGS (1)
  1. FOSAMAX [Suspect]
     Active Substance: ALENDRONATE SODIUM
     Indication: OSTEOPENIA
     Dosage: 70 MG, QW
     Route: 048
     Dates: start: 200010, end: 201109

REACTIONS (20)
  - Device breakage [Unknown]
  - Medical device removal [Unknown]
  - Blister [Unknown]
  - Femur fracture [Unknown]
  - Internal fixation of fracture [Unknown]
  - Arthralgia [Unknown]
  - Diabetes mellitus [Unknown]
  - Stress urinary incontinence [Not Recovered/Not Resolved]
  - Osteoporosis [Unknown]
  - Laparoscopic surgery [Unknown]
  - Urinary tract infection [Unknown]
  - Asthenia [Unknown]
  - Hypothyroidism [Unknown]
  - Femur fracture [Unknown]
  - Hysterectomy [Unknown]
  - Hyperlipidaemia [Unknown]
  - Intramedullary rod insertion [Unknown]
  - Intramedullary rod insertion [Unknown]
  - Fracture nonunion [Unknown]
  - Gastrooesophageal reflux disease [Unknown]

NARRATIVE: CASE EVENT DATE: 200105
